FAERS Safety Report 4716363-3 (Version None)
Quarter: 2005Q3

REPORT INFORMATION
  Report Type: 
  Country: None (occurrence: None)
  Receive Date: 20050715
  Receipt Date: 20050715
  Transmission Date: 20060218
  Serious: Yes (Other)
  Sender: FDA-Public Use
  Company Number: None

PATIENT
  Sex: Female
  Weight: 0.0594 kg

DRUGS (5)
  1. TEMODAR [Suspect]
     Indication: GLIOBLASTOMA MULTIFORME
     Dosage: 75 MG/M2 /DAY Q DAY )X 6 WEEKS PLUS
     Dates: start: 20050606
  2. IRINOTECAN [Suspect]
     Dosage: (DAYS 1 AND 15 Q 28 DAYS)
  3. DEXAMETHASONE [Concomitant]
     Dosage: QD X 6 WEEKS
  4. AEROSOLIZED PENTAMIDINE [Concomitant]
  5. RADIATION [Suspect]
     Dosage: 6 WEEKS

REACTIONS (7)
  - CYANOSIS [None]
  - DEEP VEIN THROMBOSIS [None]
  - HYPERAESTHESIA [None]
  - LEG AMPUTATION [None]
  - PAIN IN EXTREMITY [None]
  - PERIPHERAL OCCLUSIVE DISEASE [None]
  - SKIN DISCOLOURATION [None]
